FAERS Safety Report 17017635 (Version 2)
Quarter: 2021Q1

REPORT INFORMATION
  Report Type: Report from Study
  Country: BR (occurrence: BR)
  Receive Date: 20191111
  Receipt Date: 20210223
  Transmission Date: 20210419
  Serious: Yes (Other)
  Sender: FDA-Public Use
  Company Number: BR-TAKEDA-2019TUS057336

PATIENT
  Age: 26 Year
  Sex: Female

DRUGS (4)
  1. MESALAZINE [Concomitant]
     Active Substance: MESALAMINE
     Indication: COLITIS ULCERATIVE
     Dosage: 800 MILLIGRAM, TID
     Route: 048
  2. CLONAZEPAM. [Concomitant]
     Active Substance: CLONAZEPAM
     Indication: DEPRESSION
     Dosage: 2 MILLIGRAM, QD
     Route: 048
  3. VEDOLIZUMAB [Suspect]
     Active Substance: VEDOLIZUMAB
     Indication: COLITIS ULCERATIVE
     Dosage: 300 MILLIGRAM
     Route: 042
     Dates: start: 20190724, end: 20200908
  4. ESCITALOPRAM [Concomitant]
     Active Substance: ESCITALOPRAM OXALATE
     Indication: DEPRESSION
     Dosage: 20 MILLIGRAM, QD
     Route: 048

REACTIONS (10)
  - Haematochezia [Unknown]
  - Dizziness [Unknown]
  - Dehydration [Recovered/Resolved]
  - Diarrhoea [Unknown]
  - Drug effect less than expected [Unknown]
  - Anaemia [Not Recovered/Not Resolved]
  - Off label use [Unknown]
  - Pus in stool [Unknown]
  - Headache [Unknown]
  - Arthralgia [Unknown]

NARRATIVE: CASE EVENT DATE: 20190724
